FAERS Safety Report 18129306 (Version 1)
Quarter: 2020Q3

REPORT INFORMATION
  Report Type: Spontaneous
  Country: US (occurrence: US)
  Receive Date: 20200807
  Receipt Date: 20200807
  Transmission Date: 20201103
  Serious: No
  Sender: FDA-Public Use
  Company Number: None

PATIENT
  Age: 62 Year
  Sex: Female

DRUGS (1)
  1. IOPAMIDOL (IOPAMIDOL 612MG/ML INJ) [Suspect]
     Active Substance: IOPAMIDOL
     Dates: start: 20191029, end: 20191029

REACTIONS (13)
  - Toothache [None]
  - Cellulitis [None]
  - Headache [None]
  - Contrast media reaction [None]
  - Swelling face [None]
  - Malaise [None]
  - Lip swelling [None]
  - Swollen tongue [None]
  - Urticaria [None]
  - Angioedema [None]
  - Dyspnoea [None]
  - Neck pain [None]
  - Rash [None]

NARRATIVE: CASE EVENT DATE: 20191029
